FAERS Safety Report 24046006 (Version 2)
Quarter: 2024Q3

REPORT INFORMATION
  Report Type: Spontaneous
  Country: JP (occurrence: JP)
  Receive Date: 20240703
  Receipt Date: 20240807
  Transmission Date: 20241016
  Serious: Yes (Other)
  Sender: MERCK
  Company Number: JP-MSD-M2024-25308

PATIENT
  Age: 8 Decade

DRUGS (6)
  1. KEYTRUDA [Suspect]
     Active Substance: PEMBROLIZUMAB
     Indication: Bile duct cancer recurrent
     Dosage: 200 MILLIGRAM, Q3W
     Route: 041
     Dates: start: 20240620, end: 2024
  2. KEYTRUDA [Suspect]
     Active Substance: PEMBROLIZUMAB
     Dosage: 200 MILLIGRAM, Q3W
     Route: 041
     Dates: start: 2024
  3. GEMCITABINE HYDROCHLORIDE [Concomitant]
     Active Substance: GEMCITABINE HYDROCHLORIDE
     Indication: Bile duct cancer recurrent
     Dosage: 1000 MILLIGRAM/SQ. METER
     Route: 041
     Dates: start: 20240620, end: 2024
  4. GEMCITABINE HYDROCHLORIDE [Concomitant]
     Active Substance: GEMCITABINE HYDROCHLORIDE
     Dosage: 1000 MILLIGRAM/SQ. METER
     Route: 041
     Dates: start: 2024
  5. CISPLATIN [Concomitant]
     Active Substance: CISPLATIN
     Indication: Bile duct cancer recurrent
     Dosage: 25 MILLIGRAM/SQ. METER
     Route: 041
     Dates: start: 20240620, end: 2024
  6. CISPLATIN [Concomitant]
     Active Substance: CISPLATIN
     Dosage: 25 MILLIGRAM/SQ. METER
     Route: 041
     Dates: start: 2024

REACTIONS (4)
  - Biliary obstruction [Unknown]
  - Cholangitis [Unknown]
  - Biliary dilatation [Unknown]
  - Liver disorder [Unknown]

NARRATIVE: CASE EVENT DATE: 20240101
